FAERS Safety Report 4921138-6 (Version None)
Quarter: 2006Q1

REPORT INFORMATION
  Report Type: 
  Country: None (occurrence: None)
  Receive Date: 20060217
  Receipt Date: 20060206
  Transmission Date: 20060701
  Serious: Yes (Other)
  Sender: FDA-Public Use
  Company Number: 2006EU000337

PATIENT
  Age: 61 Year
  Sex: Female

DRUGS (4)
  1. PROGRAF [Suspect]
     Indication: RENAL TRANSPLANT
     Dosage: UNKNOWN/D
     Route: 065
  2. BASILIXIMAB (BASILIXIMAB) [Suspect]
     Indication: RENAL TRANSPLANT
     Dosage: UNKNOWN/D
     Route: 065
  3. MYCOPHENOLATE MOFETIL (MYCOPHENOLATE MOFETIL) [Suspect]
     Indication: RENAL TRANSPLANT
     Dosage: UNKNOWN/D
     Route: 065
  4. PREDNISONE TAB [Suspect]
     Indication: RENAL TRANSPLANT
     Dosage: UNKNOWN/D
     Route: 065

REACTIONS (3)
  - HAEMODIALYSIS [None]
  - KAPOSI'S SARCOMA [None]
  - RENAL FAILURE ACUTE [None]
